FAERS Safety Report 4664765-6 (Version None)
Quarter: 2005Q2

REPORT INFORMATION
  Report Type: 
  Country: None (occurrence: None)
  Receive Date: 20050516
  Receipt Date: 20050502
  Transmission Date: 20051028
  Serious: Yes (Other)
  Sender: FDA-Public Use
  Company Number: GRP05000069

PATIENT
  Sex: Male

DRUGS (5)
  1. ACTON ACTH INJ [Suspect]
     Indication: OSTEOPOROSIS
     Dosage: 35 MG, 1 /WEEK, ORAL
     Route: 048
     Dates: start: 20041109, end: 20050331
  2. ANTIPSYCHOTICS [Concomitant]
  3. PANTOPRAZOLE SODIUM [Concomitant]
  4. VITAMIN D [Concomitant]
  5. METOCLOPRAMIDE [Concomitant]

REACTIONS (1)
  - RHABDOMYOLYSIS [None]
